FAERS Safety Report 23245263 (Version 1)
Quarter: 2023Q4

REPORT INFORMATION
  Report Type: Spontaneous
  Country: FI (occurrence: FI)
  Receive Date: 20231130
  Receipt Date: 20231130
  Transmission Date: 20240110
  Serious: Yes (Other)
  Sender: FDA-Public Use
  Company Number: FI-AMGEN-FINSP2023211319

PATIENT

DRUGS (1)
  1. BEVACIZUMAB [Suspect]
     Active Substance: BEVACIZUMAB
     Indication: Neovascular age-related macular degeneration
     Dosage: UNK

REACTIONS (6)
  - Subretinal fibrosis [Unknown]
  - Dry age-related macular degeneration [Unknown]
  - Retinal oedema [Unknown]
  - Detachment of retinal pigment epithelium [Unknown]
  - Subretinal fluid [Unknown]
  - Off label use [Unknown]
